FAERS Safety Report 8170274-2 (Version None)
Quarter: 2012Q1

REPORT INFORMATION
  Report Type: 
  Country: None (occurrence: None)
  Receive Date: 20120104
  Receipt Date: 20111024
  Transmission Date: 20120608
  Serious: No
  Sender: FDA-Public Use
  Company Number: 2011HGS-002680

PATIENT
  Age: 53 Year
  Sex: Female
  Weight: 76.2043 kg

DRUGS (18)
  1. VOLTAREN GEL 1% (DICLOFENAC POTASSIUM) (DICLOFENAC POTASSIUM) [Concomitant]
  2. PREDNISONE [Concomitant]
  3. MORPHINE [Concomitant]
  4. SYNTHORID (LEVOTHYROXINE SODIUM) (LEVOTHYROXINE SODIUM) [Concomitant]
  5. ESTRADIOL [Concomitant]
  6. NORFLEX (ORPHENADRINE CITRATE) (ORPHENADRINE CITRATE) [Concomitant]
  7. RESTASIS EYE DROPS (CICLOSPORIN) (CICLOSPORIN) [Concomitant]
  8. TOPAMAX (TOPIRAMATE) (TOPIRAMATE) [Concomitant]
  9. LASIX [Concomitant]
  10. PLAQUENIL (HYDROXYCHLOROQUINE SULFATE) (HYDROXYCHLOROQUINE SULFATE) [Concomitant]
  11. NEXIUM [Concomitant]
  12. VERPAMIL (VERAPAMIL) (VERAPAMIL) [Concomitant]
  13. BENLYSTA [Suspect]
     Indication: SYSTEMIC LUPUS ERYTHEMATOSUS
     Dosage: 10 MG/KG, EVERY 2 WEEKS AND 4 WEEKS THEREAFTER, INTRAVENOUS DRIP
     Route: 041
     Dates: start: 20110922
  14. OXYCODONE HCL [Concomitant]
  15. MELOXICAM [Concomitant]
  16. ZOMEG (ZOLMITRIPTAN) (ZOLMITRIPTAN) [Concomitant]
  17. PRISTIQ [Concomitant]
  18. POTASSIUM CHLORIDE [Concomitant]

REACTIONS (6)
  - NAUSEA [None]
  - DIARRHOEA [None]
  - HEADACHE [None]
  - WEIGHT DECREASED [None]
  - ABDOMINAL DISCOMFORT [None]
  - VOMITING [None]
